FAERS Safety Report 8911356 (Version 3)
Quarter: 2013Q2

REPORT INFORMATION
  Report Type: Spontaneous
  Country: US (occurrence: US)
  Receive Date: 20121115
  Receipt Date: 20130503
  Transmission Date: 20140414
  Serious: No
  Sender: FDA-Public Use
  Company Number: US-009507513-1211USA005761

PATIENT
  Age: 56 Year
  Sex: Female

DRUGS (5)
  1. VICTRELIS [Suspect]
     Indication: HEPATITIS C
     Dosage: FOUR OF THE 200 MG CAPSULES,TID EVERY 7 TO 9 HOURS
     Route: 048
     Dates: start: 201210
  2. PEGASYS [Suspect]
     Dosage: 180 MICROGRAM, QW
     Dates: start: 201210
  3. RIBASPHERE [Suspect]
     Dosage: 600 MG, QD
     Dates: start: 201210
  4. AMITRIPTYLINE HYDROCHLORIDE [Concomitant]
  5. PROCRIT [Concomitant]
     Dosage: 4000 UNITS, QW
     Dates: start: 201212

REACTIONS (8)
  - Blood count abnormal [Not Recovered/Not Resolved]
  - Fatigue [Not Recovered/Not Resolved]
  - Arthralgia [Not Recovered/Not Resolved]
  - Pain in extremity [Not Recovered/Not Resolved]
  - Photopsia [Not Recovered/Not Resolved]
  - Decreased appetite [Unknown]
  - Dysgeusia [Unknown]
  - Nausea [Unknown]
